FAERS Safety Report 18935750 (Version 3)
Quarter: 2021Q1

REPORT INFORMATION
  Report Type: Spontaneous
  Country: FR (occurrence: FR)
  Receive Date: 20210225
  Receipt Date: 20210309
  Transmission Date: 20210420
  Serious: Yes (Other)
  Sender: FDA-Public Use
  Company Number: FR-AUROBINDO-AUR-APL-2021-006830

PATIENT
  Age: 79 Year
  Sex: Female

DRUGS (12)
  1. FUROSEMIDE RENAUDIN [Suspect]
     Active Substance: FUROSEMIDE
     Indication: CARDIAC FAILURE
     Dosage: 40 MILLIGRAM, ONCE A DAY
     Route: 042
     Dates: start: 20210105, end: 20210108
  2. REPAGLINIDE ARROW 1MG [Suspect]
     Active Substance: REPAGLINIDE
     Indication: TYPE 2 DIABETES MELLITUS
     Dosage: 3 MILLIGRAM, ONCE A DAY
     Route: 048
  3. METFORMIN [Suspect]
     Active Substance: METFORMIN HYDROCHLORIDE
     Indication: TYPE 2 DIABETES MELLITUS
     Dosage: 2 GRAM, ONCE A DAY
     Route: 048
     Dates: start: 20210105, end: 20210105
  4. TRULICITY [Suspect]
     Active Substance: DULAGLUTIDE
     Indication: TYPE 2 DIABETES MELLITUS
     Dosage: 1 DOSAGE FORM, ONCE A DAY
     Route: 058
  5. CALCIPARINE [Suspect]
     Active Substance: HEPARIN CALCIUM
     Indication: THROMBOSIS PROPHYLAXIS
     Dosage: 2 DOSAGE FORM, ONCE A DAY
     Route: 058
     Dates: start: 20210105, end: 20210112
  6. LEVOTHYROX [Suspect]
     Active Substance: LEVOTHYROXINE
     Indication: HYPOTHYROIDISM
     Dosage: 150 MILLIGRAM, ONCE A DAY
     Route: 048
  7. AMLODIPINE ARROW 10 MG [Suspect]
     Active Substance: AMLODIPINE BESYLATE
     Indication: HYPERTENSION
     Dosage: 10 MILLIGRAM, ONCE A DAY
     Route: 048
  8. BISOCE [Suspect]
     Active Substance: BISOPROLOL
     Indication: HYPERTENSION
     Dosage: 5 MILLIGRAM, ONCE A DAY
     Route: 048
  9. KARDEGIC [Suspect]
     Active Substance: ASPIRIN DL-LYSINE
     Indication: CARDIAC FAILURE
     Dosage: 75 MILLIGRAM, ONCE A DAY
     Route: 048
  10. LISINOPRIL. [Suspect]
     Active Substance: LISINOPRIL
     Indication: HYPERTENSION
     Dosage: 20 MILLIGRAM, ONCE A DAY
     Route: 048
     Dates: start: 20210105, end: 20210111
  11. HUMALOG [Suspect]
     Active Substance: INSULIN LISPRO
     Indication: TYPE 2 DIABETES MELLITUS
     Dosage: 30 INTERNATIONAL UNIT, ONCE A DAY
     Route: 058
     Dates: start: 20210105, end: 20210112
  12. ROSUVASTATINE MYLAN [Suspect]
     Active Substance: ROSUVASTATIN CALCIUM
     Indication: CARDIOVASCULAR EVENT PROPHYLAXIS
     Dosage: 20 MILLIGRAM, ONCE A DAY
     Route: 048

REACTIONS (4)
  - Acute kidney injury [Not Recovered/Not Resolved]
  - Hypokalaemia [Recovered/Resolved]
  - Product prescribing error [Recovered/Resolved]
  - Transcription medication error [Recovered/Resolved]

NARRATIVE: CASE EVENT DATE: 20210106
